FAERS Safety Report 21141169 (Version 2)
Quarter: 2022Q3

REPORT INFORMATION
  Report Type: Spontaneous
  Country: US (occurrence: US)
  Receive Date: 20220728
  Receipt Date: 20220826
  Transmission Date: 20221027
  Serious: No
  Sender: FDA-Public Use
  Company Number: US-GSKCCFUS-Case-01446120_AE-82940

PATIENT
  Age: 28 Year
  Sex: Female
  Weight: 68.027 kg

DRUGS (1)
  1. NUCALA [Suspect]
     Active Substance: MEPOLIZUMAB
     Indication: Product used for unknown indication
     Dosage: 100 MG, Z(EVERY 4 WEEKS)
     Route: 058
     Dates: start: 20220726

REACTIONS (2)
  - Accidental exposure to product [Unknown]
  - Device use confusion [Unknown]

NARRATIVE: CASE EVENT DATE: 20220726
